FAERS Safety Report 10751506 (Version 1)
Quarter: 2015Q1

REPORT INFORMATION
  Report Type: Spontaneous
  Country: US (occurrence: None)
  Receive Date: 20150126
  Receipt Date: 20150126
  Transmission Date: 20150721
  Serious: Yes (Hospitalization)
  Sender: FDA-Public Use
  Company Number: MC201300175

PATIENT
  Age: 60 Year
  Sex: Male

DRUGS (3)
  1. ANGIOMAX [Suspect]
     Active Substance: BIVALIRUDIN
     Indication: PERCUTANEOUS CORONARY INTERVENTION
     Dosage: 15 ML, BOLUS (15 ML,BOLUS), INTRAVENOUSE (NOT OTHERWISE SPECIFIED)
     Route: 042
     Dates: start: 20130405, end: 20130405
  2. BRILINTA (TICAGRELOR)(TICAGRELOR) [Concomitant]
     Dosage: 180 MG, AT THE START OF PCI (180 MG)
     Route: 042
  3. INTEGRILIN (EPTIFIBATIDE)(EPTIFIBATIDE) [Concomitant]
     Dosage: STARTED DURING PCI, INTRAVENOUSE (NOT OTHERWISE SPECIFIED)
     Route: 042

REACTIONS (3)
  - Hyperhidrosis [None]
  - Unresponsive to stimuli [None]
  - Haemorrhage intracranial [None]

NARRATIVE: CASE EVENT DATE: 20130405
